FAERS Safety Report 24984779 (Version 1)
Quarter: 2025Q1

REPORT INFORMATION
  Report Type: Spontaneous
  Country: ES (occurrence: ES)
  Receive Date: 20250219
  Receipt Date: 20250219
  Transmission Date: 20250408
  Serious: Yes (Life-Threatening, Hospitalization)
  Sender: TEVA
  Company Number: None

PATIENT
  Age: 75 Year
  Sex: Female

DRUGS (2)
  1. CLOPIDOGREL [Interacting]
     Active Substance: CLOPIDOGREL BISULFATE
     Indication: Coronary arterial stent insertion
     Dosage: CLOPIDOGREL (7300A)
     Route: 065
     Dates: start: 20250108, end: 20250119
  2. ASPIRIN [Interacting]
     Active Substance: ASPIRIN
     Indication: Coronary arterial stent insertion
     Dosage: GASTRO-RESISTANT TABLETS EFG, 60 TABLETS
     Route: 048
     Dates: start: 20241223

REACTIONS (2)
  - Lower gastrointestinal haemorrhage [Recovered/Resolved]
  - Shock haemorrhagic [Recovered/Resolved]

NARRATIVE: CASE EVENT DATE: 20250119
